FAERS Safety Report 8998898 (Version 1)
Quarter: 2013Q1

REPORT INFORMATION
  Report Type: Spontaneous
  Country: GB (occurrence: GB)
  Receive Date: 20130103
  Receipt Date: 20130103
  Transmission Date: 20140127
  Serious: Yes (Other)
  Sender: FDA-Public Use
  Company Number: GB-SANOFI-AVENTIS-2012SA094535

PATIENT
  Age: 23 Year
  Sex: Female
  Weight: 70 kg

DRUGS (3)
  1. RIFAMPICIN [Suspect]
     Indication: ANTIBIOTIC PROPHYLAXIS
     Route: 065
     Dates: start: 20120911, end: 20120917
  2. DEPO-PROVERA [Interacting]
     Indication: CONTRACEPTION
     Route: 065
  3. SALBUTAMOL [Concomitant]

REACTIONS (3)
  - Pregnancy on contraceptive [Unknown]
  - Drug interaction [Unknown]
  - Pregnancy with injectable contraceptive [Unknown]
